FAERS Safety Report 13062154 (Version 1)
Quarter: 2016Q4

REPORT INFORMATION
  Report Type: Spontaneous
  Country: US (occurrence: US)
  Receive Date: 20161226
  Receipt Date: 20161226
  Transmission Date: 20170207
  Serious: Yes (Other)
  Sender: FDA-Public Use
  Company Number: US-B.I. PHARMACEUTICALS,INC./RIDGEFIELD-2016-BI-086185

PATIENT
  Sex: Female

DRUGS (7)
  1. DULCOLAX (BISACODYL) [Suspect]
     Active Substance: BISACODYL
     Dosage: 4 TABS AS NEEDED;  FORM STRENGTH: 5 MG; FORMULATION: TABLET? ADMINISTRATION CORRECT? NO ?ACTION(S) T
     Route: 048
     Dates: start: 2016
  2. ALPRAZOLAM. [Concomitant]
     Active Substance: ALPRAZOLAM
     Indication: PRODUCT USED FOR UNKNOWN INDICATION
     Route: 048
  3. LEVOTHYROXINE. [Concomitant]
     Active Substance: LEVOTHYROXINE
     Indication: HYPOTHYROIDISM
     Route: 048
  4. DULCOLAX STOOL SOFTENER [Suspect]
     Active Substance: DOCUSATE SODIUM
     Indication: CONSTIPATION
     Dosage: 3 CAPS AS NEEDED;  FORM STRENGTH: 100 MG; FORMULATION: CAPSULE? ADMINISTRATION CORRECT? YES ?ACTION(
     Route: 048
     Dates: start: 2010
  5. DULCOLAX (BISACODYL) [Suspect]
     Active Substance: BISACODYL
     Indication: CONSTIPATION
     Dosage: FORM STRENGTH: 5 MG; FORMULATION: TABLET? ADMINISTRATION CORRECT? YES ?ACTION(S) TAKEN WITH PRODUCT:
     Route: 048
     Dates: start: 2010
  6. MECLIZINE [Concomitant]
     Active Substance: MECLIZINE HYDROCHLORIDE
     Indication: DIZZINESS
     Route: 048
  7. SPIRONOLACTONE. [Concomitant]
     Active Substance: SPIRONOLACTONE
     Indication: FLUID RETENTION
     Route: 048

REACTIONS (3)
  - Drug ineffective [Not Recovered/Not Resolved]
  - Drug administration error [Unknown]
  - Renal disorder [Not Recovered/Not Resolved]

NARRATIVE: CASE EVENT DATE: 2011
